FAERS Safety Report 8255568-4 (Version None)
Quarter: 2012Q2

REPORT INFORMATION
  Report Type: 
  Country: None (occurrence: None)
  Receive Date: 20120403
  Receipt Date: 20120323
  Transmission Date: 20120825
  Serious: Yes (Other)
  Sender: FDA-Public Use
  Company Number: JP-AMGEN-JPNCT2012015220

PATIENT
  Age: 40 Year
  Sex: Male
  Weight: 64 kg

DRUGS (13)
  1. LEUCOVORIN CALCIUM [Suspect]
     Indication: COLORECTAL CANCER
     Route: 041
     Dates: start: 20101005, end: 20110104
  2. PANITUMUMAB [Suspect]
     Dosage: 6 MG/KG, Q2WK
     Dates: start: 20101130, end: 20101130
  3. HIRUDOID [Concomitant]
     Dosage: UNK
     Route: 062
  4. IRINOTECAN HCL [Suspect]
     Indication: COLORECTAL CANCER
     Route: 041
     Dates: start: 20101005, end: 20110104
  5. MOTILIUM [Concomitant]
     Dosage: UNK
     Route: 048
  6. LOCOID [Concomitant]
     Dosage: UNK
     Route: 062
  7. SULFUR CAMPHOR MARUISHI [Concomitant]
     Dosage: UNK
     Route: 062
  8. CORTICOSTEROIDS [Concomitant]
     Indication: PROPHYLAXIS
     Route: 065
  9. PYDOXAL [Concomitant]
     Dosage: UNK
     Route: 048
  10. PANITUMUMAB [Suspect]
     Indication: COLORECTAL CANCER
     Dosage: 6 MG/KG, Q2WK
     Dates: start: 20101005
  11. FLUOROURACIL [Suspect]
     Indication: COLORECTAL CANCER
     Route: 040
     Dates: start: 20101005, end: 20110104
  12. FLUOROURACIL [Suspect]
     Route: 041
     Dates: start: 20101005, end: 20110104
  13. MINOMYCIN [Concomitant]
     Dosage: UNK
     Route: 048

REACTIONS (5)
  - NEUTROPHIL COUNT DECREASED [None]
  - ECZEMA ASTEATOTIC [None]
  - DECREASED APPETITE [None]
  - STOMATITIS [None]
  - ECZEMA [None]
